FAERS Safety Report 24779295 (Version 1)
Quarter: 2024Q4

REPORT INFORMATION
  Report Type: Report from Study
  Country: CA (occurrence: CA)
  Receive Date: 20241226
  Receipt Date: 20241226
  Transmission Date: 20250115
  Serious: Yes (Other)
  Sender: IPSEN BIOPHARMACEUTICALS, INC.
  Company Number: CA-IPSEN Group, Research and Development-2023-23499

PATIENT
  Age: 54 Year
  Sex: Female

DRUGS (4)
  1. LANREOTIDE ACETATE [Suspect]
     Active Substance: LANREOTIDE ACETATE
     Indication: Gastroenteropancreatic neuroendocrine tumour disease
     Dosage: VIA DEEP SUBCUTANEOUS ROUTE
     Route: 058
     Dates: start: 20231005
  2. LANREOTIDE ACETATE [Suspect]
     Active Substance: LANREOTIDE ACETATE
     Dosage: VIA DEEP SUBCUTANEOUS ROUTE
     Route: 058
     Dates: start: 202409
  3. IRON [Concomitant]
     Active Substance: IRON
     Dosage: PILL
  4. VITAMIN C [Concomitant]
     Active Substance: ASCORBIC ACID
     Dosage: PRN

REACTIONS (89)
  - Ill-defined disorder [Recovered/Resolved]
  - Depressed level of consciousness [Not Recovered/Not Resolved]
  - Ill-defined disorder [Unknown]
  - Eructation [Recovered/Resolved]
  - Dyspepsia [Recovered/Resolved]
  - Myalgia [Recovered/Resolved]
  - Hunger [Recovering/Resolving]
  - Gastrointestinal pain [Not Recovered/Not Resolved]
  - Discomfort [Unknown]
  - Diarrhoea [Unknown]
  - Faeces discoloured [Unknown]
  - Anxiety [Recovered/Resolved]
  - Hot flush [Not Recovered/Not Resolved]
  - Nervousness [Recovering/Resolving]
  - Fatigue [Recovered/Resolved]
  - Headache [Unknown]
  - Frequent bowel movements [Recovered/Resolved]
  - Injection site nodule [Recovered/Resolved]
  - Injection site pain [Recovered/Resolved]
  - Feeling hot [Recovered/Resolved]
  - Injection site erythema [Recovered/Resolved]
  - Erythema [Not Recovered/Not Resolved]
  - Insomnia [Recovered/Resolved]
  - Dizziness [Recovered/Resolved]
  - Head discomfort [Recovered/Resolved]
  - Feeling hot [Unknown]
  - Insomnia [Not Recovered/Not Resolved]
  - Breast tenderness [Recovered/Resolved]
  - Pollakiuria [Recovered/Resolved]
  - Feeling abnormal [Recovered/Resolved]
  - Abdominal pain [Unknown]
  - Abdominal pain upper [Not Recovered/Not Resolved]
  - Fatigue [Recovered/Resolved]
  - Constipation [Recovered/Resolved]
  - Heart rate increased [Recovered/Resolved]
  - Limb discomfort [Recovered/Resolved]
  - Heart rate increased [Not Recovered/Not Resolved]
  - Peripheral coldness [Recovered/Resolved]
  - Abdominal discomfort [Recovered/Resolved]
  - Chest discomfort [Recovered/Resolved]
  - Chest pain [Recovered/Resolved]
  - Brain fog [Unknown]
  - Decreased appetite [Recovered/Resolved]
  - Dry mouth [Unknown]
  - Constipation [Not Recovered/Not Resolved]
  - Blood glucose increased [Unknown]
  - Tinnitus [Recovered/Resolved]
  - Injection site pain [Recovered/Resolved]
  - Dizziness [Not Recovered/Not Resolved]
  - Fatigue [Recovered/Resolved]
  - Abdominal distension [Recovered/Resolved]
  - Abdominal pain [Recovered/Resolved]
  - Diarrhoea [Unknown]
  - Stress [Not Recovered/Not Resolved]
  - Abdominal pain [Recovered/Resolved]
  - Abdominal discomfort [Recovered/Resolved]
  - Flushing [Unknown]
  - Peripheral coldness [Not Recovered/Not Resolved]
  - Injection site mass [Recovered/Resolved]
  - Breast pain [Not Recovered/Not Resolved]
  - Toothache [Recovered/Resolved]
  - Diarrhoea [Not Recovered/Not Resolved]
  - Eye pruritus [Recovered/Resolved]
  - Injection site pruritus [Unknown]
  - Flushing [Unknown]
  - Injection site pain [Unknown]
  - Fatigue [Unknown]
  - Injection site mass [Unknown]
  - Brain fog [Recovered/Resolved]
  - Injection site pain [Recovered/Resolved]
  - Injection site discomfort [Recovered/Resolved]
  - Anxiety [Not Recovered/Not Resolved]
  - Hot flush [Unknown]
  - Feeling abnormal [Unknown]
  - Dizziness [Recovered/Resolved]
  - Stress [Recovered/Resolved]
  - White coat hypertension [Unknown]
  - Tinnitus [Recovered/Resolved]
  - Abdominal discomfort [Unknown]
  - Feeling hot [Unknown]
  - Thinking abnormal [Unknown]
  - Frequent bowel movements [Unknown]
  - Menopausal symptoms [Not Recovered/Not Resolved]
  - Fatigue [Unknown]
  - Laziness [Unknown]
  - Tinnitus [Unknown]
  - Abdominal distension [Unknown]
  - Off label use [Unknown]
  - Product administered at inappropriate site [Unknown]

NARRATIVE: CASE EVENT DATE: 20230101
